FAERS Safety Report 8798022 (Version 1)
Quarter: 2012Q4

REPORT INFORMATION
  Report Type: 
  Country: US (occurrence: US)
  Receive Date: 20120920
  Receipt Date: 20120920
  Transmission Date: 20130627
  Serious: Yes (Other)
  Sender: FDA-Public Use
  Company Number: US-ELI_LILLY_AND_COMPANY-US201209003166

PATIENT
  Age: 52 Year
  Sex: Female

DRUGS (4)
  1. SYMBYAX [Suspect]
     Indication: DEPRESSION
     Dosage: 1 DF, UNK
  2. RESTORIL [Concomitant]
  3. XANAX [Concomitant]
     Dosage: 1 DF, prn
  4. PRAVASTATIN [Concomitant]
     Dosage: 40 mg, UNK

REACTIONS (2)
  - Cardiac failure congestive [Unknown]
  - Oedema peripheral [Recovered/Resolved]
